FAERS Safety Report 9144439 (Version 1)
Quarter: 2013Q1

REPORT INFORMATION
  Report Type: Spontaneous
  Country: US (occurrence: US)
  Receive Date: 20130306
  Receipt Date: 20130306
  Transmission Date: 20140127
  Serious: No
  Sender: FDA-Public Use
  Company Number: US-BAYER-2013-028617

PATIENT
  Age: 32 Year
  Sex: Male
  Weight: 79 kg

DRUGS (2)
  1. ALEVE CAPLET/TABLET,MIDOL EXTENDED RELIEF CAPLET [Suspect]
     Indication: HEADACHE
     Dosage: 4 DF, ONCE
     Route: 048
     Dates: start: 20130228
  2. IBUPROFEN [Concomitant]
     Indication: HEADACHE
     Dosage: UNK UNK, PRN

REACTIONS (1)
  - Overdose [None]
